FAERS Safety Report 7829787-2 (Version None)
Quarter: 2011Q4

REPORT INFORMATION
  Report Type: 
  Country: None (occurrence: None)
  Receive Date: 20111020
  Receipt Date: 20111020
  Transmission Date: 20120403
  Serious: No
  Sender: FDA-Public Use
  Company Number: None

PATIENT
  Sex: Female
  Weight: 83.9154 kg

DRUGS (1)
  1. PRADAXA [Suspect]
     Indication: ANTICOAGULANT THERAPY
     Dosage: 150MG 2 A DAY TWICE DAILY

REACTIONS (3)
  - THINKING ABNORMAL [None]
  - ABDOMINAL PAIN UPPER [None]
  - DYSPEPSIA [None]
